FAERS Safety Report 17648445 (Version 1)
Quarter: 2020Q2

REPORT INFORMATION
  Report Type: Spontaneous
  Country: US (occurrence: US)
  Receive Date: 20200408
  Receipt Date: 20200408
  Transmission Date: 20200713
  Serious: Yes (Death)
  Sender: FDA-Public Use
  Company Number: US-CELGENEUS-USA-20200402010

PATIENT
  Sex: Male

DRUGS (1)
  1. AZACITIDINE. [Suspect]
     Active Substance: AZACITIDINE
     Indication: NON-HODGKIN^S LYMPHOMA
     Dosage: 152 MILLIGRAM
     Route: 042
     Dates: start: 201912

REACTIONS (1)
  - Death [Fatal]
